FAERS Safety Report 9640818 (Version 2)
Quarter: 2013Q4

REPORT INFORMATION
  Report Type: Report from Study
  Country: US (occurrence: US)
  Receive Date: 20131023
  Receipt Date: 20131023
  Transmission Date: 20140711
  Serious: No
  Sender: FDA-Public Use
  Company Number: US-ABBVIE-13P-163-1075753-00

PATIENT
  Age: 30 Year
  Sex: Female
  Weight: 61.29 kg

DRUGS (5)
  1. LUPRON DEPOT [Suspect]
     Indication: ENDOMETRIOSIS
     Dates: start: 201302
  2. NORETHINDRONE ACETATE [Concomitant]
     Indication: HORMONE THERAPY
     Dates: start: 201302
  3. MELOXICAM [Concomitant]
     Indication: BONE PAIN
  4. NORCO [Concomitant]
     Indication: BACK PAIN
     Dates: start: 2013
  5. FLEXERIL [Concomitant]
     Indication: BACK PAIN
     Dates: start: 2013

REACTIONS (10)
  - Sciatica [Not Recovered/Not Resolved]
  - Dyspepsia [Recovering/Resolving]
  - Road traffic accident [Recovered/Resolved]
  - Nausea [Recovering/Resolving]
  - Headache [Not Recovered/Not Resolved]
  - Migraine [Not Recovered/Not Resolved]
  - Nausea [Not Recovered/Not Resolved]
  - Vomiting [Not Recovered/Not Resolved]
  - Photophobia [Not Recovered/Not Resolved]
  - Vaginal haemorrhage [Not Recovered/Not Resolved]
